FAERS Safety Report 9452864 (Version 1)
Quarter: 2013Q3

REPORT INFORMATION
  Report Type: Spontaneous
  Country: US (occurrence: US)
  Receive Date: 20130812
  Receipt Date: 20130812
  Transmission Date: 20140515
  Serious: Yes (Life-Threatening, Hospitalization)
  Sender: FDA-Public Use
  Company Number: US-BAYER-2013-095712

PATIENT
  Age: 20 Year
  Sex: Female

DRUGS (2)
  1. BEYAZ [Suspect]
  2. DOBUTAMINE [Concomitant]

REACTIONS (1)
  - Pulmonary embolism [None]
